FAERS Safety Report 18834502 (Version 1)
Quarter: 2021Q1

REPORT INFORMATION
  Report Type: Spontaneous
  Country: US (occurrence: US)
  Receive Date: 20210203
  Receipt Date: 20210203
  Transmission Date: 20210419
  Serious: No
  Sender: FDA-Public Use
  Company Number: US-ALLERGAN-2019810US

PATIENT
  Age: 32 Year
  Sex: Female

DRUGS (3)
  1. COLLAGEN [Concomitant]
     Active Substance: COLLAGEN
  2. MULTIVITAMIN [Concomitant]
     Active Substance: VITAMINS
     Dosage: UNK
  3. BOTOX COSMETIC [Suspect]
     Active Substance: ONABOTULINUMTOXINA
     Indication: LIP COSMETIC PROCEDURE
     Dosage: 3 UNITS, SINGLE
     Dates: start: 20200505, end: 20200505

REACTIONS (3)
  - Injection site hypoaesthesia [Recovered/Resolved]
  - Product preparation error [Unknown]
  - Off label use [Unknown]

NARRATIVE: CASE EVENT DATE: 202005
